FAERS Safety Report 24814771 (Version 4)
Quarter: 2025Q1

REPORT INFORMATION
  Report Type: Spontaneous
  Country: FR (occurrence: FR)
  Receive Date: 20250107
  Receipt Date: 20250205
  Transmission Date: 20250409
  Serious: Yes (Death, Hospitalization, Other)
  Sender: MERCK
  Company Number: None

PATIENT
  Age: 84 Year
  Sex: Male
  Weight: 105 kg

DRUGS (3)
  1. KEYTRUDA [Suspect]
     Active Substance: PEMBROLIZUMAB
     Indication: Bladder transitional cell carcinoma
     Route: 051
     Dates: start: 20241127, end: 20241127
  2. PADCEV [Suspect]
     Active Substance: ENFORTUMAB VEDOTIN-EJFV
     Indication: Bladder transitional cell carcinoma
     Route: 051
     Dates: start: 20241127, end: 20241127
  3. PADCEV [Suspect]
     Active Substance: ENFORTUMAB VEDOTIN-EJFV
     Route: 051
     Dates: start: 20241204, end: 20241204

REACTIONS (11)
  - Cardio-respiratory arrest [Fatal]
  - Respiratory distress [Fatal]
  - Diabetes mellitus inadequate control [Fatal]
  - Diabetic ketosis [Fatal]
  - Diarrhoea [Fatal]
  - Pneumonitis [Fatal]
  - Diabetic metabolic decompensation [Not Recovered/Not Resolved]
  - Vomiting [Recovered/Resolved]
  - Pyrexia [Not Recovered/Not Resolved]
  - Oedema peripheral [Unknown]
  - General physical condition abnormal [Not Recovered/Not Resolved]

NARRATIVE: CASE EVENT DATE: 20241201
